FAERS Safety Report 26189056 (Version 1)
Quarter: 2025Q4

REPORT INFORMATION
  Report Type: Spontaneous
  Country: JP (occurrence: JP)
  Receive Date: 20251223
  Receipt Date: 20251223
  Transmission Date: 20260118
  Serious: Yes (Other)
  Sender: RECORDATI
  Company Number: JP-ORPHANEU-2025009205

PATIENT
  Sex: Female

DRUGS (1)
  1. ENJAYMO [Suspect]
     Active Substance: SUTIMLIMAB-JOME
     Indication: Cold type haemolytic anaemia
     Route: 042

REACTIONS (2)
  - Warm autoimmune haemolytic anaemia [Unknown]
  - Rheumatic disorder [Not Recovered/Not Resolved]
